FAERS Safety Report 6786797-4 (Version None)
Quarter: 2010Q2

REPORT INFORMATION
  Report Type: 
  Country: None (occurrence: None)
  Receive Date: 20100623
  Receipt Date: 20100519
  Transmission Date: 20101027
  Serious: Yes (Other)
  Sender: FDA-Public Use
  Company Number: FR-BAYER-201026724GPV

PATIENT
  Age: 0 Hour
  Sex: Male
  Weight: 2.12 kg

DRUGS (1)
  1. ADALATE VIA MOTHER [Suspect]
     Indication: PREMATURE LABOUR
     Route: 064
     Dates: start: 20100518

REACTIONS (1)
  - DYSPNOEA [None]
